FAERS Safety Report 4761431-3 (Version None)
Quarter: 2005Q3

REPORT INFORMATION
  Report Type: 
  Country: None (occurrence: None)
  Receive Date: 20050901
  Receipt Date: 20050901
  Transmission Date: 20060218
  Serious: Yes (Hospitalization)
  Sender: FDA-Public Use
  Company Number: None

PATIENT
  Sex: Male
  Weight: 115.2136 kg

DRUGS (8)
  1. PROGRAF [Suspect]
     Indication: POLYMYOSITIS
     Dosage: 5MG TWICE A DAY PO
     Route: 048
     Dates: start: 20050422, end: 20050831
  2. PREDNISONE TAB [Concomitant]
  3. BENICAR [Concomitant]
  4. MICROZIDE [Concomitant]
  5. NEXIUM [Concomitant]
  6. BACTRIM DS [Concomitant]
  7. DIFLUCAN [Concomitant]
  8. ALBUTEROL [Concomitant]

REACTIONS (1)
  - DIABETES MELLITUS [None]
